FAERS Safety Report 7250764-7 (Version None)
Quarter: 2011Q1

REPORT INFORMATION
  Report Type: 
  Country: None (occurrence: None)
  Receive Date: 20110128
  Receipt Date: 20110119
  Transmission Date: 20110831
  Serious: Yes (Other)
  Sender: FDA-Public Use
  Company Number: US-PERRIGO-11US000528

PATIENT
  Sex: Female

DRUGS (1)
  1. DAYTIME PE LIQGL 215 [Suspect]
     Indication: PRODUCT USED FOR UNKNOWN INDICATION
     Dosage: 1 LIQUIGEL, SINGLE
     Route: 048
     Dates: start: 20110116, end: 20110116

REACTIONS (1)
  - HALLUCINATION [None]
